FAERS Safety Report 16681863 (Version 1)
Quarter: 2019Q3

REPORT INFORMATION
  Report Type: Spontaneous
  Country: ES (occurrence: ES)
  Receive Date: 20190808
  Receipt Date: 20190808
  Transmission Date: 20191004
  Serious: Yes (Hospitalization)
  Sender: FDA-Public Use
  Company Number: ES-BAXTER-2019BAX015052

PATIENT
  Age: 38 Year
  Sex: Female
  Weight: 64 kg

DRUGS (7)
  1. LORAZEPAM. [Concomitant]
     Active Substance: LORAZEPAM
     Indication: ANXIETY
     Route: 048
     Dates: start: 20190611
  2. DOCETAXEL ACCORD [Suspect]
     Active Substance: DOCETAXEL
     Indication: BREAST CANCER
     Dosage: 160 MG/8 ML,  FIRST CYCLE OF NEOADJUVANT CHEMOTHERAPY FOR BREAST CANCER.
     Route: 042
     Dates: start: 20190610
  3. METOCLOPRAMIDE. [Concomitant]
     Active Substance: METOCLOPRAMIDE
     Indication: PRODUCT USED FOR UNKNOWN INDICATION
     Dosage: TABLET,
     Route: 048
     Dates: start: 20190610
  4. EPIRUBICIN TEVA [Suspect]
     Active Substance: EPIRUBICIN
     Indication: BREAST CANCER
     Dosage: FIRST CYCLE OF NEOADJUVANT CHEMOTHERAPY FOR BREAST CANCER
     Route: 042
     Dates: start: 20190610
  5. OMEPRAZOLE. [Concomitant]
     Active Substance: OMEPRAZOLE
     Indication: PROPHYLAXIS AGAINST GASTROINTESTINAL ULCER
     Route: 048
     Dates: start: 20190610
  6. GENOXAL [Suspect]
     Active Substance: CYCLOPHOSPHAMIDE
     Indication: BREAST CANCER
     Dosage: VIAL, FIRST CYCLE OF NEOADJUVANT CHEMOTHERAPY FOR BREAST CANCER.
     Route: 042
     Dates: start: 20190610
  7. ZARZIO [Concomitant]
     Active Substance: FILGRASTIM
     Indication: PRODUCT USED FOR UNKNOWN INDICATION
     Dosage: 1 INJECTION PER DAY FOR 10 DAYS
     Route: 058
     Dates: start: 20190611, end: 20190616

REACTIONS (5)
  - Nausea [Unknown]
  - Neutropenia [Unknown]
  - Neutropenic colitis [Unknown]
  - Diarrhoea [Unknown]
  - Septic shock [Unknown]

NARRATIVE: CASE EVENT DATE: 20190619
